FAERS Safety Report 20001120 (Version 1)
Quarter: 2021Q4

REPORT INFORMATION
  Report Type: Spontaneous
  Country: US (occurrence: US)
  Receive Date: 20211026
  Receipt Date: 20211026
  Transmission Date: 20220303
  Serious: Yes (Hospitalization)
  Sender: FDA-Public Use
  Company Number: None

PATIENT
  Sex: Male

DRUGS (6)
  1. SILDENAFIL [Suspect]
     Active Substance: SILDENAFIL
     Indication: Pulmonary arterial hypertension
     Route: 048
  2. CLONIDINE DIS [Concomitant]
  3. FIRST-OMEPRA SUS [Concomitant]
  4. FUROSEMIDE SOL [Concomitant]
  5. MULTIVITAMIN TAB [Concomitant]
  6. SPIRONOLACT POW [Concomitant]

REACTIONS (2)
  - Respiratory syncytial virus test positive [None]
  - Therapy interrupted [None]
